FAERS Safety Report 6982081-4 (Version None)
Quarter: 2010Q3

REPORT INFORMATION
  Report Type: 
  Country: None (occurrence: None)
  Receive Date: 20100909
  Receipt Date: 20100901
  Transmission Date: 20110219
  Serious: Yes (Other)
  Sender: FDA-Public Use
  Company Number: ENT-2010-0141 (1)

PATIENT
  Age: 62 Year
  Sex: Female

DRUGS (7)
  1. COMTAN [Suspect]
     Indication: DRUG EFFECT DECREASED
     Dosage: 100 MG DAILY ORAL
     Route: 048
     Dates: start: 20090601
  2. COMTAN [Suspect]
     Indication: PARKINSON'S DISEASE
     Dosage: 100 MG DAILY ORAL
     Route: 048
     Dates: start: 20090601
  3. BI-SIFROL (PRAMIPEXOLE) [Suspect]
     Dosage: 1.5 MG DAILY  ORAL
     Route: 048
  4. CARBIDOPA AND LEVODOPA [Suspect]
     Dosage: 300 MG DAILY ORAL
     Route: 048
  5. ZOLOFT [Suspect]
     Dosage: 2 DF, DAILY
     Dates: start: 20100624
  6. MENESIT [Concomitant]
  7. ARTANE [Concomitant]

REACTIONS (4)
  - INAPPROPRIATE SCHEDULE OF DRUG ADMINISTRATION [None]
  - LOSS OF CONSCIOUSNESS [None]
  - ROAD TRAFFIC ACCIDENT [None]
  - SUDDEN ONSET OF SLEEP [None]
